FAERS Safety Report 7120152-2 (Version None)
Quarter: 2010Q4

REPORT INFORMATION
  Report Type: 
  Country: None (occurrence: None)
  Receive Date: 20101123
  Receipt Date: 20101115
  Transmission Date: 20110411
  Serious: Yes (Life-Threatening, Hospitalization)
  Sender: FDA-Public Use
  Company Number: CZ-AMGEN-CZECT2010002623

PATIENT
  Sex: Male

DRUGS (8)
  1. PEGFILGRASTIM [Suspect]
     Indication: COLORECTAL CANCER METASTATIC
  2. BEVACIZUMAB [Suspect]
     Dosage: 475 MG, UNK
  3. FLUOROURACIL [Suspect]
  4. OXALIPLATIN [Suspect]
  5. LEUCOVORIN CALCIUM [Suspect]
     Dosage: 837 MG, UNK
  6. ALOPURINOL [Concomitant]
  7. ONDANSETRON [Concomitant]
  8. DEXAMETHASONE [Concomitant]

REACTIONS (1)
  - ANAPHYLACTIC SHOCK [None]
